FAERS Safety Report 16855208 (Version 1)
Quarter: 2019Q3

REPORT INFORMATION
  Report Type: Spontaneous
  Country: US (occurrence: US)
  Receive Date: 20190926
  Receipt Date: 20190926
  Transmission Date: 20191005
  Serious: No
  Sender: FDA-Public Use
  Company Number: US-BION-007983

PATIENT
  Sex: Female
  Weight: 74.84 kg

DRUGS (1)
  1. IMODIUM A-D [Suspect]
     Active Substance: LOPERAMIDE HYDROCHLORIDE
     Indication: DIARRHOEA
     Dosage: ONE SOFTGEL ONCE
     Route: 048
     Dates: start: 20190424

REACTIONS (1)
  - Urticaria [Unknown]
